FAERS Safety Report 5411622-3 (Version None)
Quarter: 2007Q3

REPORT INFORMATION
  Report Type: 
  Country: None (occurrence: None)
  Receive Date: 20070810
  Receipt Date: 20070731
  Transmission Date: 20080115
  Serious: Yes (Other)
  Sender: FDA-Public Use
  Company Number: JP-PFIZER INC-2007061590

PATIENT
  Sex: Male

DRUGS (13)
  1. LIPITOR [Suspect]
     Indication: HYPERLIPIDAEMIA
     Dosage: DAILY DOSE:10MG
     Route: 048
     Dates: start: 20070309, end: 20070314
  2. FAMOTIDINE [Suspect]
     Indication: PROPHYLAXIS
     Dosage: DAILY DOSE:20MG
     Route: 048
     Dates: start: 20070209, end: 20070709
  3. ALLOPURINOL [Concomitant]
     Indication: HYPERURICAEMIA
     Route: 048
     Dates: start: 20070209, end: 20070318
  4. LOXONIN [Concomitant]
     Indication: MYALGIA
     Route: 048
     Dates: start: 20070209, end: 20070318
  5. LOXONIN [Concomitant]
     Indication: ARTHRALGIA
     Dosage: DAILY DOSE:180MG-FREQ:PRN
     Route: 048
     Dates: start: 20070319, end: 20070611
  6. MUCOSTA [Concomitant]
     Indication: PROPHYLAXIS
     Route: 048
     Dates: start: 20070209, end: 20070313
  7. AMLODIPINE [Concomitant]
     Indication: HYPERTENSION
     Route: 048
     Dates: start: 20070417, end: 20070417
  8. AMLODIPINE [Concomitant]
     Route: 048
     Dates: start: 20070418, end: 20070608
  9. AMLODIPINE [Concomitant]
     Route: 048
     Dates: start: 20070609, end: 20070623
  10. CANDESARTAN CILEXETIL [Concomitant]
     Indication: HYPERTENSION
     Route: 048
     Dates: start: 20070220, end: 20070423
  11. MAGNESIUM OXIDE [Concomitant]
     Indication: CONSTIPATION
     Route: 048
     Dates: start: 20070209, end: 20070713
  12. INDOMETHACIN [Concomitant]
     Indication: MYALGIA
     Dosage: TEXT:DAILY-FREQ:AS NEEDED
     Dates: start: 20070209, end: 20070723
  13. INDOMETHACIN [Concomitant]
     Indication: ARTHRALGIA

REACTIONS (1)
  - HEPATOCELLULAR DAMAGE [None]
